FAERS Safety Report 9869602 (Version 1)
Quarter: 2014Q1

REPORT INFORMATION
  Report Type: Spontaneous
  Country: FR (occurrence: None)
  Receive Date: 20140203
  Receipt Date: 20140203
  Transmission Date: 20141002
  Serious: Yes (Hospitalization)
  Sender: FDA-Public Use
  Company Number: FR-ALKEM-000484

PATIENT
  Age: 54 Year
  Sex: Female

DRUGS (10)
  1. METFORMINE (METFORMIN) [Suspect]
     Indication: TYPE 2 DIABETES MELLITUS
  2. FENOFIBRATE [Concomitant]
  3. FLUNARIZINE [Concomitant]
  4. PANTOPRAZOLE [Concomitant]
  5. HYDROCORTISONE [Concomitant]
  6. ALENDRONIC ACID [Concomitant]
  7. METHOTREXATE [Concomitant]
  8. PAROXETINE [Concomitant]
  9. CLORAZEPATE [Concomitant]
  10. DIPOTASSIUM [Concomitant]

REACTIONS (9)
  - Metabolic acidosis [None]
  - Renal failure [None]
  - Body temperature increased [None]
  - Heart rate increased [None]
  - Drug level increased [None]
  - Haemodialysis [None]
  - Biopsy kidney abnormal [None]
  - Renal tubular disorder [None]
  - Nephritis [None]
